FAERS Safety Report 5404539-1 (Version None)
Quarter: 2007Q3

REPORT INFORMATION
  Report Type: 
  Country: None (occurrence: None)
  Receive Date: 20070727
  Receipt Date: 20070717
  Transmission Date: 20080115
  Serious: Yes (Other)
  Sender: FDA-Public Use
  Company Number: B0480686A

PATIENT
  Age: 67 Year
  Sex: Male

DRUGS (1)
  1. AVANDIA [Suspect]
     Dosage: TWICE PER DAY

REACTIONS (6)
  - ANAEMIA [None]
  - ASTHENIA [None]
  - DYSPNOEA EXERTIONAL [None]
  - JOINT SWELLING [None]
  - MEAN CELL VOLUME INCREASED [None]
  - OEDEMA PERIPHERAL [None]
